FAERS Safety Report 8795051 (Version 2)
Quarter: 2015Q1

REPORT INFORMATION
  Report Type: Report from Study
  Country: US (occurrence: US)
  Receive Date: 20120917
  Receipt Date: 20150227
  Transmission Date: 20150721
  Serious: Yes (Death)
  Sender: FDA-Public Use
  Company Number: US-ROCHE-1095416

PATIENT
  Sex: Male

DRUGS (20)
  1. AVASTIN [Suspect]
     Active Substance: BEVACIZUMAB
     Indication: METASTASES TO LIVER
     Route: 041
     Dates: end: 20080717
  2. POTASSIUM CHLORIDE. [Concomitant]
     Active Substance: POTASSIUM CHLORIDE
     Route: 042
  3. CISPLATIN. [Concomitant]
     Active Substance: CISPLATIN
     Route: 042
  4. MANNITOL. [Concomitant]
     Active Substance: MANNITOL
     Route: 065
  5. DECADRON [Concomitant]
     Active Substance: DEXAMETHASONE
     Route: 042
  6. MEGACE [Concomitant]
     Active Substance: MEGESTROL ACETATE
     Route: 048
  7. AMBIEN [Concomitant]
     Active Substance: ZOLPIDEM TARTRATE
  8. ARANESP [Concomitant]
     Active Substance: DARBEPOETIN ALFA
     Route: 058
  9. REGLAN [Concomitant]
     Active Substance: METOCLOPRAMIDE HYDROCHLORIDE
     Route: 065
  10. CELEXA (UNITED STATES) [Concomitant]
  11. LORAZEPAM. [Concomitant]
     Active Substance: LORAZEPAM
     Route: 048
  12. ATROPINE [Concomitant]
     Active Substance: ATROPINE
     Route: 042
  13. COUMADIN (UNITED STATES) [Concomitant]
     Dosage: 6MG QPM EXCEPT MONDAY 7MG
     Route: 065
  14. ATIVAN [Concomitant]
     Active Substance: LORAZEPAM
     Route: 048
  15. ALOXI [Concomitant]
     Active Substance: PALONOSETRON HYDROCHLORIDE
     Route: 042
  16. AVASTIN [Suspect]
     Active Substance: BEVACIZUMAB
     Indication: OESOPHAGEAL CARCINOMA
  17. IRINOTECAN [Concomitant]
     Active Substance: IRINOTECAN
     Route: 042
  18. EMEND [Concomitant]
     Active Substance: APREPITANT
     Route: 048
  19. LEVAQUIN [Concomitant]
     Active Substance: LEVOFLOXACIN
     Route: 065
  20. MAGNESIUM SULPHATE [Concomitant]
     Active Substance: MAGNESIUM SULFATE
     Route: 042

REACTIONS (8)
  - Oedema peripheral [Unknown]
  - Depression [Unknown]
  - Asthenia [Unknown]
  - Nausea [Unknown]
  - Malaise [Unknown]
  - Death [Fatal]
  - Epistaxis [Unknown]
  - Off label use [Unknown]
